FAERS Safety Report 14109986 (Version 1)
Quarter: 2017Q4

REPORT INFORMATION
  Report Type: Spontaneous
  Country: US (occurrence: US)
  Receive Date: 20171020
  Receipt Date: 20171020
  Transmission Date: 20180321
  Serious: No
  Sender: FDA-Public Use
  Company Number: US-TEVA-706917USA

PATIENT
  Sex: Female

DRUGS (1)
  1. SPRINTEC [Suspect]
     Active Substance: ETHINYL ESTRADIOL\NORGESTIMATE
     Dosage: 0.18/0.25; 0.215/0.035; 0.250/MG
     Dates: start: 2016

REACTIONS (7)
  - Reaction to excipient [Unknown]
  - Mood swings [Unknown]
  - Menstruation delayed [Unknown]
  - Renal disorder [Unknown]
  - Bladder disorder [Unknown]
  - Emotional distress [Unknown]
  - Adverse event [Unknown]

NARRATIVE: CASE EVENT DATE: 2016
